FAERS Safety Report 8821393 (Version 1)
Quarter: 2012Q4

REPORT INFORMATION
  Report Type: 
  Country: US (occurrence: US)
  Receive Date: 20121002
  Receipt Date: 20121002
  Transmission Date: 20130627
  Serious: Yes (Hospitalization, Disabling, Other)
  Sender: FDA-Public Use
  Company Number: US-009507513-2010SP042534

PATIENT

DRUGS (5)
  1. NUVARING [Suspect]
     Indication: CONTRACEPTION
     Dates: start: 200606, end: 20080802
  2. SINGULAIR [Concomitant]
     Indication: ASTHMA
     Dosage: 10 mg, hs
     Dates: start: 2004, end: 2008
  3. NASONEX [Concomitant]
     Indication: SEASONAL ALLERGY
     Dosage: PUFFS PER NOSTRIL
     Route: 045
  4. VITAMINS (UNSPECIFIED) [Concomitant]
  5. PROVENTIL [Concomitant]
     Dosage: UNK UNK, PRN

REACTIONS (27)
  - Hemiparesis [Recovered/Resolved]
  - Hypovolaemia [Unknown]
  - Hypothyroidism [Unknown]
  - Cerebrovascular accident [Recovering/Resolving]
  - Intracranial venous sinus thrombosis [Recovering/Resolving]
  - Hypertension [Unknown]
  - Cerebral haemorrhage [Unknown]
  - Deep vein thrombosis [Unknown]
  - Cognitive disorder [Recovering/Resolving]
  - Seasonal allergy [Unknown]
  - Anxiety [Unknown]
  - Blood cholesterol abnormal [Unknown]
  - Hypersensitivity [Unknown]
  - Lyme disease [Unknown]
  - Headache [Recovered/Resolved]
  - Nausea [Recovering/Resolving]
  - Vomiting [Recovering/Resolving]
  - Depression [Unknown]
  - Oedema peripheral [Unknown]
  - Cellulitis [Unknown]
  - Viral infection [Unknown]
  - Asthmatic crisis [Unknown]
  - Breast pain [Unknown]
  - Breast swelling [Unknown]
  - Breast discharge [Recovered/Resolved]
  - Keloid scar [Unknown]
  - Nodule [Unknown]
